FAERS Safety Report 9167359 (Version 2)
Quarter: 2013Q2

REPORT INFORMATION
  Report Type: Spontaneous
  Country: US (occurrence: None)
  Receive Date: 20130305
  Receipt Date: 20130410
  Transmission Date: 20140414
  Serious: Yes (Other)
  Sender: FDA-Public Use
  Company Number: ACO_34614_2013

PATIENT
  Sex: Female
  Weight: 59.9 kg

DRUGS (5)
  1. AMPYRA (DALFAMPRIDINE) TABLET, 10MG [Suspect]
     Dosage: 10 MG, BID
     Dates: start: 20111005, end: 20120724
  2. COPAXONE (GLATIRAMER ACETATE) [Concomitant]
  3. CITALOPRAM [Concomitant]
  4. CLONAZEPAM (CLONAZEPAM) (CLONAZEPAM) [Concomitant]
  5. BACLOFEN (BACLOFEN) [Concomitant]

REACTIONS (4)
  - Breast cancer female [None]
  - Hot flush [None]
  - Inappropriate schedule of drug administration [None]
  - Oestrogen receptor assay positive [None]
